FAERS Safety Report 7458657-7 (Version None)
Quarter: 2011Q2

REPORT INFORMATION
  Report Type: 
  Country: None (occurrence: None)
  Receive Date: 20110426
  Receipt Date: 20110414
  Transmission Date: 20111010
  Serious: Yes (Other)
  Sender: FDA-Public Use
  Company Number: 1000020276

PATIENT
  Age: 19 Year
  Sex: Female

DRUGS (4)
  1. RISPERIDONE FLASH (RISPERIDONE) (TABLETS) [Suspect]
     Indication: DISTURBANCE IN SOCIAL BEHAVIOUR
     Dosage: 0.5 MG (0.5 MG,1 IN 1 D),ORAL
     Route: 048
     Dates: start: 20100409, end: 20100801
  2. ESCITALOPRAM [Suspect]
     Indication: DEPRESSION
     Dosage: 30 MG (10 MG,3 I N1 D) ; 15 MG (15 MG,1 IN 1 D)
     Dates: start: 20100901
  3. ESCITALOPRAM [Suspect]
     Indication: DEPRESSION
     Dosage: 30 MG (10 MG,3 I N1 D) ; 15 MG (15 MG,1 IN 1 D)
     Dates: start: 20090101, end: 20100901
  4. DEPO PROGEVERA (MEDROXYPROGESTERONE ACETATE) (INJECTION) [Suspect]
     Indication: CONTRACEPTION
     Dosage: 1.6667 MG (150 MG,1 IN 3 M),INTRAMUSCULAR
     Route: 030
     Dates: start: 20090101

REACTIONS (3)
  - DRUG INTERACTION [None]
  - ABNORMAL WEIGHT GAIN [None]
  - OVERDOSE [None]
